FAERS Safety Report 7953070-8 (Version None)
Quarter: 2011Q4

REPORT INFORMATION
  Report Type: 
  Country: None (occurrence: None)
  Receive Date: 20111201
  Receipt Date: 20111129
  Transmission Date: 20120403
  Serious: Yes (Other)
  Sender: FDA-Public Use
  Company Number: VE-PFIZER INC-2011271428

PATIENT
  Age: 48 Year
  Sex: Male

DRUGS (2)
  1. VARENICLINE TARTRATE [Suspect]
     Indication: SMOKING CESSATION THERAPY
     Dosage: 0.5 MG, 1X/DAY
     Route: 048
     Dates: start: 20111022, end: 20111028
  2. VARENICLINE TARTRATE [Suspect]
     Dosage: 1 MG, 1X/DAY
     Route: 048
     Dates: start: 20111029

REACTIONS (1)
  - SHOULDER OPERATION [None]
